FAERS Safety Report 20608948 (Version 3)
Quarter: 2022Q2

REPORT INFORMATION
  Report Type: Other
  Country: JP (occurrence: JP)
  Receive Date: 20220317
  Receipt Date: 20220624
  Transmission Date: 20220721
  Serious: Yes (Death, Hospitalization)
  Sender: FDA-Public Use
  Company Number: JP-CHUGAI-2022008768

PATIENT
  Age: 50 Year
  Sex: Male
  Weight: 62.1 kg

DRUGS (5)
  1. ATEZOLIZUMAB [Suspect]
     Active Substance: ATEZOLIZUMAB
     Indication: Lung adenocarcinoma
     Dosage: ON 15/NOV/2021, HE RECEIVED MOST RECENT DOSE OF ATEZOLIZUMAB.
     Route: 041
     Dates: start: 20210729, end: 20211115
  2. BEVACIZUMAB [Suspect]
     Active Substance: BEVACIZUMAB
     Indication: Lung adenocarcinoma
     Dosage: 938 MILLIGRAM
     Route: 041
     Dates: start: 20210729
  3. BEVACIZUMAB [Suspect]
     Active Substance: BEVACIZUMAB
     Dosage: 867 MILLIGRAM
     Route: 041
     Dates: start: 20211025, end: 20211115
  4. CARBOPLATIN [Concomitant]
     Active Substance: CARBOPLATIN
     Indication: Lung adenocarcinoma
     Dosage: 536 MILLIGRAM
     Route: 041
     Dates: start: 20210729, end: 20210930
  5. PACLITAXEL [Concomitant]
     Active Substance: PACLITAXEL
     Indication: Lung adenocarcinoma
     Dosage: 355 MILLIGRAM
     Route: 041
     Dates: start: 20210729, end: 20210930

REACTIONS (2)
  - Pancreatitis acute [Recovering/Resolving]
  - Weight decreased [Fatal]

NARRATIVE: CASE EVENT DATE: 20211013
